FAERS Safety Report 9265448 (Version 5)
Quarter: 2014Q3

REPORT INFORMATION
  Report Type: Spontaneous
  Country: ES (occurrence: ES)
  Receive Date: 20130501
  Receipt Date: 20140902
  Transmission Date: 20150326
  Serious: Yes (Hospitalization)
  Sender: FDA-Public Use
  Company Number: ES-VERTEX PHARMACEUTICALS INC-2013-005599

PATIENT
  Sex: Male

DRUGS (4)
  1. INCIVO [Suspect]
     Active Substance: TELAPREVIR
     Indication: HEPATITIS C
     Dosage: NOTED AS SMPC
     Route: 048
     Dates: start: 20120730, end: 20121022
  2. RIBAVIRIN. [Suspect]
     Active Substance: RIBAVIRIN
     Indication: HEPATITIS C
     Dosage: 1000 ?G, UNK
     Route: 065
     Dates: start: 20120730, end: 20120925
  3. RIBAVIRIN. [Suspect]
     Active Substance: RIBAVIRIN
     Dosage: 800 ?G, UNK
     Route: 065
     Dates: start: 20120925, end: 20121029
  4. PEGASYS [Suspect]
     Active Substance: PEGINTERFERON ALFA-2A
     Indication: HEPATITIS C
     Dosage: 180 MG, UNK
     Route: 065
     Dates: start: 20120730, end: 20121029

REACTIONS (6)
  - Pyrexia [Recovered/Resolved]
  - Staphylococcal sepsis [Recovered/Resolved]
  - Thrombocytopenia [Unknown]
  - Meningitis staphylococcal [Unknown]
  - Leukopenia [Unknown]
  - Haemoglobin decreased [Recovered/Resolved]
